FAERS Safety Report 10903854 (Version 1)
Quarter: 2015Q1

REPORT INFORMATION
  Report Type: Report from Study
  Country: US (occurrence: None)
  Receive Date: 20150306
  Receipt Date: 20150306
  Transmission Date: 20150721
  Serious: Yes (Hospitalization, Other)
  Sender: FDA-Public Use
  Company Number: US2015GSK027532

PATIENT
  Age: 46 Year
  Sex: Male
  Weight: 73.9 kg

DRUGS (7)
  1. ASPIRIN. [Concomitant]
     Active Substance: ASPIRIN
  2. VITAMIN C [Concomitant]
     Active Substance: ASCORBIC ACID
  3. MARAVIROC (MARAVIROC) UNKNOWN [Suspect]
     Active Substance: MARAVIROC
     Indication: HIV INFECTION
  4. STRIBILD (COBICISTAT + ELVITEGRAVIR + EMTRICITABINE + TENOFOVIR DISOPROXIL FUMARATE) [Concomitant]
  5. CO-TRIMOXAZOLE (SULFAMETHOXAZOLE + TRIMETHOPRIM) [Concomitant]
  6. FLUTICASONE [Concomitant]
     Active Substance: FLUTICASONE\FLUTICASONE PROPIONATE
  7. VITAMIN B COMPLEX (VITAMIN B SUBSTANCES NOS) [Concomitant]

REACTIONS (2)
  - Metastases to lymph nodes [None]
  - Metastatic malignant melanoma [None]

NARRATIVE: CASE EVENT DATE: 20140317
